FAERS Safety Report 9871374 (Version 2)
Quarter: 2014Q1

REPORT INFORMATION
  Report Type: Spontaneous
  Country: NO (occurrence: NO)
  Receive Date: 20140205
  Receipt Date: 20140205
  Transmission Date: 20141002
  Serious: Yes (Hospitalization, Other)
  Sender: FDA-Public Use
  Company Number: NO-PFIZER INC-2013335413

PATIENT
  Age: 81 Year
  Sex: Male

DRUGS (8)
  1. MYCOPHENOLATE MOFETIL [Suspect]
     Dates: start: 2002, end: 2011
  2. PREDNISOLONE [Suspect]
     Indication: GRANULOMATOSIS WITH POLYANGIITIS
     Dosage: 40 MG, 1X/DAY
     Route: 048
  3. PREDNISOLONE [Suspect]
     Dosage: 5 MG, 1X/DAY
     Route: 048
     Dates: start: 201104, end: 201301
  4. PREDNISOLONE [Suspect]
  5. RITUXIMAB [Suspect]
     Indication: GRANULOMATOSIS WITH POLYANGIITIS
     Dosage: TWO 1 G INFUSION 2 WEEKS APART
     Route: 042
  6. METHOTREXATE [Concomitant]
     Indication: GRANULOMATOSIS WITH POLYANGIITIS
     Dosage: UNK
     Dates: start: 1999, end: 2001
  7. METHYLPREDNISOLONE [Concomitant]
     Indication: GRANULOMATOSIS WITH POLYANGIITIS
  8. CYCLOPHOSPHAMIDE [Concomitant]
     Indication: GRANULOMATOSIS WITH POLYANGIITIS
     Dosage: A CUMULATIVE DOSE OF 25 G
     Route: 042

REACTIONS (5)
  - Pneumocystis jirovecii pneumonia [Recovered/Resolved]
  - Pneumonia [Recovered/Resolved]
  - Herpes zoster [Recovered/Resolved]
  - Pyrexia [Unknown]
  - Night sweats [Unknown]
